FAERS Safety Report 6894480-X (Version None)
Quarter: 2010Q3

REPORT INFORMATION
  Report Type: 
  Country: None (occurrence: None)
  Receive Date: 20100802
  Receipt Date: 20100722
  Transmission Date: 20110219
  Serious: Yes (Other)
  Sender: FDA-Public Use
  Company Number: DE-JNJFOC-20100707516

PATIENT
  Age: 3 Decade
  Sex: Male
  Weight: 115 kg

DRUGS (7)
  1. REMICADE [Suspect]
     Indication: CROHN'S DISEASE
     Route: 042
  2. REMICADE [Suspect]
     Route: 042
  3. REMICADE [Suspect]
     Route: 042
  4. REMICADE [Suspect]
     Route: 042
  5. ANTIDEPRESSANTS [Concomitant]
  6. BUDESONIDE [Concomitant]
     Indication: CROHN'S DISEASE
     Dosage: FREQUENCY 1-0-0
  7. AZATHIOPRINE [Concomitant]
     Indication: CROHN'S DISEASE
     Dosage: FREQUENCY 2-0-2

REACTIONS (2)
  - BURSITIS [None]
  - HAEMATOMA INFECTION [None]
